FAERS Safety Report 4374198-8 (Version None)
Quarter: 2004Q2

REPORT INFORMATION
  Report Type: 
  Country: None (occurrence: None)
  Receive Date: 20040604
  Receipt Date: 20040527
  Transmission Date: 20050107
  Serious: Yes (Other)
  Sender: FDA-Public Use
  Company Number: US-JNJFOC-20040506500

PATIENT
  Age: 16 Year
  Sex: Female
  Weight: 81.6475 kg

DRUGS (2)
  1. CONCERTA [Suspect]
     Indication: ATTENTION DEFICIT/HYPERACTIVITY DISORDER
     Dosage: ORAL
     Route: 048
     Dates: start: 20031101
  2. LAMICTAL [Concomitant]

REACTIONS (6)
  - DIZZINESS [None]
  - DRUG SCREEN POSITIVE [None]
  - FALL [None]
  - HEAD INJURY [None]
  - NAUSEA [None]
  - SYNCOPE [None]
